FAERS Safety Report 12529252 (Version 1)
Quarter: 2016Q3

REPORT INFORMATION
  Report Type: Spontaneous
  Country: US (occurrence: US)
  Receive Date: 20160705
  Receipt Date: 20160705
  Transmission Date: 20161109
  Serious: No
  Sender: FDA-Public Use
  Company Number: US-TEIKOKU PHARMA USA-TPU2016-00401

PATIENT
  Sex: Female
  Weight: 59.02 kg

DRUGS (2)
  1. LIDODERM [Suspect]
     Active Substance: LIDOCAINE
     Dosage: 1/2 TO 1 PATCH DAILY AS NEEDED
     Route: 061
     Dates: start: 2010, end: 2010
  2. LIDODERM [Suspect]
     Active Substance: LIDOCAINE
     Indication: PAIN
     Dosage: 1/2 TO 1 PATCH DAILY AS NEEDED
     Route: 061
     Dates: start: 2008, end: 2009

REACTIONS (1)
  - Body height decreased [Not Recovered/Not Resolved]
